FAERS Safety Report 5518932-X (Version None)
Quarter: 2007Q4

REPORT INFORMATION
  Report Type: 
  Country: None (occurrence: None)
  Receive Date: 20071114
  Receipt Date: 20071114
  Transmission Date: 20080405
  Serious: Yes (Other)
  Sender: FDA-Public Use
  Company Number: None

PATIENT
  Sex: Female
  Weight: 13.6079 kg

DRUGS (2)
  1. BROVEX HC (BROMPHEN/HYDROCOD/PSE LIQUID)  PHARM-SOUTH [Suspect]
     Indication: COUGH
     Dosage: 2 MLS  EVERY 8 HOURS PRN PO
     Route: 048
     Dates: start: 20070122, end: 20070122
  2. BROVEX HC (BROMPHEN/HYDROCOD/PSE LIQUID)  PHARM-SOUTH [Suspect]
     Indication: COUGH
     Dosage: 2 MLS  EVERY 8 HOURS PRN PO
     Route: 048
     Dates: start: 20071108, end: 20071122

REACTIONS (3)
  - ABNORMAL DREAMS [None]
  - HALLUCINATION, VISUAL [None]
  - NIGHTMARE [None]
